FAERS Safety Report 10064906 (Version 3)
Quarter: 2014Q2

REPORT INFORMATION
  Report Type: Spontaneous
  Country: CN (occurrence: CN)
  Receive Date: 20140408
  Receipt Date: 20140521
  Transmission Date: 20141212
  Serious: Yes (Hospitalization)
  Sender: FDA-Public Use
  Company Number: CN-SA-2014SA031202

PATIENT
  Age: 55 Year
  Sex: Male
  Weight: 82 kg

DRUGS (10)
  1. LANTUS SOLOSTAR [Suspect]
     Indication: DIABETES MELLITUS
     Route: 058
     Dates: start: 2007
  2. LANTUS SOLOSTAR [Suspect]
     Indication: DIABETES MELLITUS
     Route: 058
  3. LANTUS SOLOSTAR [Suspect]
     Indication: DIABETES MELLITUS
     Route: 058
     Dates: start: 201307
  4. SOLOSTAR [Suspect]
     Indication: DIABETES MELLITUS
  5. METFORMIN HYDROCHLORIDE [Concomitant]
     Indication: DIABETES MELLITUS
     Route: 048
     Dates: start: 2011
  6. VALSARTAN [Concomitant]
     Indication: HYPERTENSION
     Dates: start: 201209
  7. REPAGLINIDE [Concomitant]
     Indication: DIABETES MELLITUS
     Route: 048
     Dates: start: 2011
  8. FISH OIL [Concomitant]
     Indication: HYPERLIPIDAEMIA
     Route: 048
     Dates: start: 201306
  9. HERBAL PREPARATION [Concomitant]
     Indication: HYPERLIPIDAEMIA
     Dosage: DOSE: 10 ONE TABLETS
     Route: 048
     Dates: start: 2012
  10. ASPIRIN [Concomitant]
     Indication: THROMBOSIS PROPHYLAXIS
     Route: 048
     Dates: start: 2012

REACTIONS (4)
  - Cardiac disorder [Unknown]
  - Blood glucose increased [Recovering/Resolving]
  - Product counterfeit [Unknown]
  - Cataract [Unknown]
